FAERS Safety Report 7770958-1 (Version None)
Quarter: 2011Q3

REPORT INFORMATION
  Report Type: 
  Country: None (occurrence: None)
  Receive Date: 20110922
  Receipt Date: 20101129
  Transmission Date: 20111222
  Serious: No
  Sender: FDA-Public Use
  Company Number: US-ASTRAZENECA-2010SE52829

PATIENT
  Age: 90 Year
  Sex: Female

DRUGS (24)
  1. CENTRUM SILVER [Concomitant]
  2. PROVENTIL [Concomitant]
     Dosage: AS REQUIRED
  3. PRAVASTATIN [Concomitant]
  4. AMANDA [Concomitant]
  5. PROMETHAZINE [Concomitant]
     Indication: NAUSEA
     Dosage: AS REQUIRED
  6. SEROQUEL [Suspect]
     Indication: HALLUCINATION
     Dosage: 50 MG TWO TIMES A DAY
     Route: 048
     Dates: start: 20091001
  7. SEROQUEL [Suspect]
     Route: 048
  8. FUROSEMIDE [Concomitant]
  9. SEROQUEL [Suspect]
     Route: 048
  10. ARICEPT [Concomitant]
  11. ADVAIR DISKUS 100/50 [Concomitant]
     Dosage: AS REQUIRED
  12. SEROQUEL [Suspect]
     Route: 048
     Dates: start: 20101001
  13. VITAMIN B-12 [Concomitant]
  14. LEVOXYL [Concomitant]
  15. STOOL SOFTNER [Concomitant]
  16. SEROQUEL [Suspect]
     Indication: DEMENTIA
     Dosage: 50 MG TWO TIMES A DAY
     Route: 048
     Dates: start: 20091001
  17. AMANTADINE HCL [Concomitant]
  18. METOPROLOL TARTRATE [Concomitant]
  19. CALTRATE PLUS D [Concomitant]
  20. MECLIZINE [Concomitant]
     Indication: DIZZINESS
     Dosage: AS REQUIRED
  21. SEROQUEL [Suspect]
     Route: 048
     Dates: start: 20101001
  22. POTASSIUM [Concomitant]
  23. PLAVIX [Concomitant]
     Indication: CONDUCTION DISORDER
  24. ISOSORBIDE DINITRATE [Concomitant]

REACTIONS (8)
  - FEELING ABNORMAL [None]
  - RESTLESSNESS [None]
  - DIZZINESS [None]
  - NAUSEA [None]
  - HALLUCINATION [None]
  - ANGER [None]
  - WHITE BLOOD CELL COUNT DECREASED [None]
  - AGGRESSION [None]
